FAERS Safety Report 7546414-2 (Version None)
Quarter: 2011Q2

REPORT INFORMATION
  Report Type: 
  Country: None (occurrence: None)
  Receive Date: 20110614
  Receipt Date: 20110607
  Transmission Date: 20111010
  Serious: Yes (Other)
  Sender: FDA-Public Use
  Company Number: US-TEVA-285030USA

PATIENT
  Sex: Female

DRUGS (1)
  1. METOPROLOL TARTRATE [Suspect]
     Indication: CARDIAC DISORDER
     Dosage: 100 MILLIGRAM;
     Route: 048
     Dates: start: 20100801, end: 20100801

REACTIONS (9)
  - DIARRHOEA [None]
  - LOSS OF CONSCIOUSNESS [None]
  - VISION BLURRED [None]
  - HEAD INJURY [None]
  - BLINDNESS TRANSIENT [None]
  - EYE INFECTION [None]
  - BLOOD PRESSURE DECREASED [None]
  - DIZZINESS [None]
  - WHEEZING [None]
